FAERS Safety Report 5914689-9 (Version None)
Quarter: 2008Q4

REPORT INFORMATION
  Report Type: 
  Country: None (occurrence: None)
  Receive Date: 20081010
  Receipt Date: 20081002
  Transmission Date: 20090506
  Serious: Yes (Other)
  Sender: FDA-Public Use
  Company Number: AT-JNJFOC-20081000298

PATIENT
  Age: 10 Year
  Sex: Female

DRUGS (2)
  1. CONCERTA [Suspect]
     Route: 048
  2. CONCERTA [Suspect]
     Indication: ATTENTION DEFICIT/HYPERACTIVITY DISORDER
     Route: 048

REACTIONS (7)
  - AGITATION [None]
  - ANXIETY [None]
  - FUMBLING [None]
  - INSOMNIA [None]
  - MENTAL IMPAIRMENT [None]
  - MOOD ALTERED [None]
  - SPEECH DISORDER [None]
